FAERS Safety Report 7232809-3 (Version None)
Quarter: 2011Q1

REPORT INFORMATION
  Report Type: 
  Country: None (occurrence: None)
  Receive Date: 20110106
  Receipt Date: 20101229
  Transmission Date: 20110831
  Serious: Yes (Other)
  Sender: FDA-Public Use
  Company Number: AXC-2010-000367

PATIENT
  Age: 25 Year
  Sex: Female

DRUGS (2)
  1. MESALAMINE [Suspect]
     Indication: COLITIS ULCERATIVE
  2. MESALAMINE [Suspect]
     Indication: COLITIS ULCERATIVE

REACTIONS (1)
  - EOSINOPHILIC PNEUMONIA [None]
